FAERS Safety Report 24254838 (Version 1)
Quarter: 2024Q3

REPORT INFORMATION
  Report Type: Spontaneous
  Country: US (occurrence: None)
  Receive Date: 20240826
  Receipt Date: 20240826
  Transmission Date: 20241017
  Serious: Yes (Hospitalization)
  Sender: Public
  Company Number: None

PATIENT
  Age: 61 Year
  Sex: Female

DRUGS (1)
  1. TYMLOS [Suspect]
     Active Substance: ABALOPARATIDE
     Indication: Osteoporosis
     Dosage: 80 UG MICROGRAM(S) DAILY SUBCUTANEOUS?
     Route: 058
     Dates: start: 20230507

REACTIONS (4)
  - Accident [None]
  - Fall [None]
  - Therapy interrupted [None]
  - Product use issue [None]

NARRATIVE: CASE EVENT DATE: 20240823
